FAERS Safety Report 14158952 (Version 2)
Quarter: 2019Q2

REPORT INFORMATION
  Report Type: Spontaneous
  Country: US (occurrence: US)
  Receive Date: 20171103
  Receipt Date: 20190624
  Transmission Date: 20190711
  Serious: Yes (Hospitalization, Other)
  Sender: FDA-Public Use
  Company Number: US-INDIVIOR LIMITED-INDV-105830-2017

PATIENT
  Age: 30 Year
  Sex: Male

DRUGS (2)
  1. SUBOXONE [Suspect]
     Active Substance: BUPRENORPHINE HYDROCHLORIDE\NALOXONE HYDROCHLORIDE
     Dosage: 2MG/0.5 MG, UNK RESTARTED UPON ADMISSION
     Route: 065
  2. SUBOXONE [Suspect]
     Active Substance: BUPRENORPHINE HYDROCHLORIDE\NALOXONE HYDROCHLORIDE
     Indication: DRUG DEPENDENCE
     Dosage: 2MG/0.5 MG, UNK
     Route: 065

REACTIONS (15)
  - Traumatic liver injury [Recovered/Resolved]
  - Disturbance in attention [Recovered/Resolved]
  - Brain contusion [Recovered/Resolved]
  - Renal haematoma [Recovered/Resolved]
  - Loss of consciousness [Recovered/Resolved]
  - Restlessness [Recovered/Resolved]
  - Delirium [Recovered/Resolved]
  - Rib fracture [Recovered/Resolved]
  - Ulna fracture [Recovered/Resolved]
  - Road traffic accident [Recovered/Resolved]
  - Disorientation [Recovered/Resolved]
  - Impulsive behaviour [Recovered/Resolved]
  - Splenic rupture [Recovered/Resolved]
  - Agitation [Recovered/Resolved]
  - Pain [Recovered/Resolved]
